FAERS Safety Report 7374255-8 (Version None)
Quarter: 2011Q1

REPORT INFORMATION
  Report Type: 
  Country: None (occurrence: None)
  Receive Date: 20110315
  Receipt Date: 20110303
  Transmission Date: 20110831
  Serious: Yes (Death)
  Sender: FDA-Public Use
  Company Number: 1000018599

PATIENT
  Age: 87 Year
  Sex: Female

DRUGS (3)
  1. RISPERDAL [Concomitant]
  2. MEMANTINE [Suspect]
     Indication: DEMENTIA ALZHEIMER'S TYPE
     Dosage: (5 MG (5 MG, 1 IN 1 D), ORAL) ( 10 MG (10 MG, 1 IN 1 D), ORAL)
     Route: 048
     Dates: start: 20100313
  3. MEMANTINE [Suspect]
     Indication: DEMENTIA ALZHEIMER'S TYPE
     Dosage: (5 MG (5 MG, 1 IN 1 D), ORAL) ( 10 MG (10 MG, 1 IN 1 D), ORAL)
     Route: 048
     Dates: start: 20100306, end: 20100312

REACTIONS (1)
  - GENERAL PHYSICAL HEALTH DETERIORATION [None]
